FAERS Safety Report 11775191 (Version 1)
Quarter: 2015Q4

REPORT INFORMATION
  Report Type: Spontaneous
  Country: CN (occurrence: CN)
  Receive Date: 20151124
  Receipt Date: 20151124
  Transmission Date: 20160304
  Serious: Yes (Death, Hospitalization)
  Sender: FDA-Public Use
  Company Number: CN-MYLANLABS-2015M1041301

PATIENT

DRUGS (13)
  1. FLUDARABINE [Suspect]
     Active Substance: FLUDARABINE PHOSPHATE
     Dosage: 50MG X 5
     Route: 065
     Dates: start: 201009
  2. CLADRIBINE. [Suspect]
     Active Substance: CLADRIBINE
     Indication: CHRONIC LYMPHOCYTIC LEUKAEMIA
     Route: 065
     Dates: start: 201009
  3. FLUDARABINE [Suspect]
     Active Substance: FLUDARABINE PHOSPHATE
     Indication: CHRONIC LYMPHOCYTIC LEUKAEMIA
     Dosage: 50MG X 5
     Route: 065
     Dates: start: 20050125
  4. RITUXIMAB [Suspect]
     Active Substance: RITUXIMAB
     Dosage: 600MG X 5
     Route: 065
     Dates: start: 201009
  5. FLUDARABINE [Suspect]
     Active Substance: FLUDARABINE PHOSPHATE
     Dosage: 50MG X 5
     Route: 065
     Dates: start: 201001
  6. CLADRIBINE. [Suspect]
     Active Substance: CLADRIBINE
     Dosage: UNK
     Route: 065
     Dates: start: 201110
  7. CHLORAMBUCIL [Suspect]
     Active Substance: CHLORAMBUCIL
     Indication: CHRONIC LYMPHOCYTIC LEUKAEMIA
     Route: 065
     Dates: start: 201009
  8. DEXAMETHASONE. [Suspect]
     Active Substance: DEXAMETHASONE
     Indication: CHRONIC LYMPHOCYTIC LEUKAEMIA
     Dosage: 2 CYCLES
     Route: 065
     Dates: start: 201102
  9. CYCLOPHOSPHAMIDE. [Suspect]
     Active Substance: CYCLOPHOSPHAMIDE
     Indication: CHRONIC LYMPHOCYTIC LEUKAEMIA
     Dosage: 2 CYCLES
     Route: 065
     Dates: start: 201102
  10. DOXORUBICIN [Suspect]
     Active Substance: DOXORUBICIN
     Indication: CHRONIC LYMPHOCYTIC LEUKAEMIA
     Route: 065
     Dates: start: 201110
  11. RITUXIMAB [Suspect]
     Active Substance: RITUXIMAB
     Dosage: 600MG X 5
     Route: 065
     Dates: start: 201001
  12. VINDESINE [Suspect]
     Active Substance: VINDESINE
     Indication: CHRONIC LYMPHOCYTIC LEUKAEMIA
     Dosage: 2 CYCLES
     Route: 065
     Dates: start: 201102
  13. RITUXIMAB [Suspect]
     Active Substance: RITUXIMAB
     Indication: CHRONIC LYMPHOCYTIC LEUKAEMIA
     Dosage: 600MG X 5
     Route: 065
     Dates: start: 20050125

REACTIONS (5)
  - Sepsis [Fatal]
  - Bronchopulmonary aspergillosis [Fatal]
  - Atrial fibrillation [Unknown]
  - Multi-organ failure [Fatal]
  - Bacterial infection [Unknown]

NARRATIVE: CASE EVENT DATE: 20130304
